FAERS Safety Report 16408810 (Version 1)
Quarter: 2019Q2

REPORT INFORMATION
  Report Type: Spontaneous
  Country: US (occurrence: US)
  Receive Date: 20190610
  Receipt Date: 20190610
  Transmission Date: 20190711
  Serious: No
  Sender: FDA-Public Use
  Company Number: US-BAYER-2019-108144

PATIENT
  Age: 16 Year
  Sex: Female
  Weight: 69 kg

DRUGS (2)
  1. MACROGOL 3350 [Suspect]
     Active Substance: POLYETHYLENE GLYCOL 3350
     Indication: COLONOSCOPY
  2. MACROGOL 3350 [Suspect]
     Active Substance: POLYETHYLENE GLYCOL 3350
     Indication: GASTROINTESTINAL MOTILITY DISORDER
     Dosage: 17 G, BID
     Route: 048

REACTIONS (4)
  - Abdominal pain [None]
  - Off label use [None]
  - Drug ineffective for unapproved indication [None]
  - Dyspnoea [None]
